FAERS Safety Report 7705330-3 (Version None)
Quarter: 2011Q3

REPORT INFORMATION
  Report Type: 
  Country: None (occurrence: None)
  Receive Date: 20110823
  Receipt Date: 20110823
  Transmission Date: 20111222
  Serious: No
  Sender: FDA-Public Use
  Company Number: None

PATIENT

DRUGS (1)
  1. CREST PRO HEALTH NIGHT [Suspect]

REACTIONS (14)
  - PARAESTHESIA ORAL [None]
  - GLOSSODYNIA [None]
  - ORAL DISORDER [None]
  - TOOTH DISORDER [None]
  - GINGIVAL SWELLING [None]
  - MASTICATION DISORDER [None]
  - TONGUE BLISTERING [None]
  - GINGIVAL ERYTHEMA [None]
  - GINGIVAL PAIN [None]
  - GLOSSITIS [None]
  - GINGIVAL BLEEDING [None]
  - HYPOAESTHESIA ORAL [None]
  - ORAL DISCOMFORT [None]
  - DYSPHAGIA [None]
